FAERS Safety Report 11228170 (Version 3)
Quarter: 2015Q4

REPORT INFORMATION
  Report Type: Report from Study
  Country: US (occurrence: US)
  Receive Date: 20150630
  Receipt Date: 20151007
  Transmission Date: 20160304
  Serious: Yes (Hospitalization)
  Sender: FDA-Public Use
  Company Number: US-BAYER-2015-364222

PATIENT
  Age: 67 Year
  Sex: Male

DRUGS (11)
  1. REGORAFENIB [Suspect]
     Active Substance: REGORAFENIB
     Indication: METASTATIC SALIVARY GLAND CANCER
     Dosage: UNK
     Dates: start: 20150506, end: 20150621
  2. REGORAFENIB [Suspect]
     Active Substance: REGORAFENIB
     Indication: METASTATIC SALIVARY GLAND CANCER
     Dosage: UNK
     Dates: start: 20150701
  3. PROCHLORPERAZINE. [Concomitant]
     Active Substance: PROCHLORPERAZINE
     Dosage: 10 MG
     Dates: start: 20150504
  4. ASPIRIN. [Concomitant]
     Active Substance: ASPIRIN
     Dosage: 81 MG
     Dates: start: 20150401
  5. REGORAFENIB [Suspect]
     Active Substance: REGORAFENIB
     Indication: METASTATIC SALIVARY GLAND CANCER
     Dosage: DAILY DOSE 120 MG
  6. LISINOPRIL. [Concomitant]
     Active Substance: LISINOPRIL
     Dosage: 10 MG
     Dates: start: 20150401
  7. PAROXETINE [Concomitant]
     Active Substance: PAROXETINE\PAROXETINE HYDROCHLORIDE
     Dosage: 10 MG
     Dates: start: 20150520
  8. REGORAFENIB [Suspect]
     Active Substance: REGORAFENIB
     Indication: METASTATIC SALIVARY GLAND CANCER
     Dosage: CYCLE 3, DAY 11
     Dates: start: 20150711
  9. LORAZEPAM. [Concomitant]
     Active Substance: LORAZEPAM
     Dosage: 0.5 MG
     Dates: start: 20150401
  10. SIMVASTATIN. [Concomitant]
     Active Substance: SIMVASTATIN
     Dosage: 20 MG
     Dates: start: 20150401
  11. CLOBETASOL PROPIONATE. [Concomitant]
     Active Substance: CLOBETASOL PROPIONATE
     Dosage: UNK
     Dates: start: 20150506

REACTIONS (2)
  - Dyspnoea [Recovering/Resolving]
  - Fatigue [Recovering/Resolving]

NARRATIVE: CASE EVENT DATE: 20150620
